FAERS Safety Report 22074767 (Version 1)
Quarter: 2023Q1

REPORT INFORMATION
  Report Type: Spontaneous
  Country: IT (occurrence: IT)
  Receive Date: 20230308
  Receipt Date: 20230308
  Transmission Date: 20230418
  Serious: Yes (Death, Other)
  Sender: FDA-Public Use
  Company Number: IT-IBIGEN-2023.12815

PATIENT
  Age: 72 Year
  Sex: Female

DRUGS (6)
  1. PIPERACILLIN SODIUM\TAZOBACTAM SODIUM [Suspect]
     Active Substance: PIPERACILLIN SODIUM\TAZOBACTAM SODIUM
     Indication: Product used for unknown indication
     Dosage: UNK, PIPERACILLIN/TAZOBACTAM + CEFTAROLIN
     Route: 065
  2. FUROSEMIDE [Suspect]
     Active Substance: FUROSEMIDE
     Indication: Product used for unknown indication
     Dosage: UNK
     Route: 065
  3. TIROFIBAN [Suspect]
     Active Substance: TIROFIBAN
     Indication: Product used for unknown indication
     Dosage: UNK (SECOND INFUSION)
     Route: 065
  4. TIROFIBAN [Suspect]
     Active Substance: TIROFIBAN
     Dosage: UNK (0.04 ?G/KG/MINLOADING DOSE)
     Route: 065
  5. TIROFIBAN [Suspect]
     Active Substance: TIROFIBAN
     Dosage: UNK, AFTER PEX
     Route: 065
  6. CEFTAROLINE [Suspect]
     Active Substance: CEFTAROLINE
     Indication: Product used for unknown indication
     Dosage: UNK, PIPERACILLIN/TAZOBACTAM + CEFTAROLIN
     Route: 065

REACTIONS (15)
  - Death [Fatal]
  - Anuria [Fatal]
  - Ischaemia [Fatal]
  - Hypoperfusion [Fatal]
  - Thrombocytopenic purpura [Fatal]
  - Haemodynamic instability [Fatal]
  - Thrombosis [Fatal]
  - Procalcitonin increased [Fatal]
  - White blood cell count increased [Fatal]
  - Respiratory failure [Fatal]
  - Blood creatinine increased [Fatal]
  - Confusional state [Fatal]
  - Chest pain [Fatal]
  - Anaemia [Fatal]
  - C-reactive protein increased [Fatal]
